FAERS Safety Report 9124345 (Version 2)
Quarter: 2013Q2

REPORT INFORMATION
  Report Type: Spontaneous
  Country: US (occurrence: US)
  Receive Date: 20130227
  Receipt Date: 20130401
  Transmission Date: 20140414
  Serious: Yes (Death)
  Sender: FDA-Public Use
  Company Number: PHEH2013US004764

PATIENT
  Age: 82 Year
  Sex: Female

DRUGS (2)
  1. RECLAST [Suspect]
     Dosage: UNK UKN, UNK
     Route: 042
     Dates: start: 201103
  2. RECLAST [Suspect]
     Dosage: UNK
     Route: 042
     Dates: start: 201203

REACTIONS (1)
  - Death [Fatal]
